FAERS Safety Report 9788398 (Version 3)
Quarter: 2014Q1

REPORT INFORMATION
  Report Type: Spontaneous
  Country: JP (occurrence: JP)
  Receive Date: 20131230
  Receipt Date: 20140227
  Transmission Date: 20141002
  Serious: Yes (Hospitalization)
  Sender: FDA-Public Use
  Company Number: PHHY2013JP152175

PATIENT
  Age: 54 Year
  Sex: Female
  Weight: 52 kg

DRUGS (4)
  1. DIOVAN [Suspect]
     Indication: HYPERTENSION
     Dosage: 40 MG, DAILY
     Route: 048
     Dates: start: 20080416
  2. CLARITIN [Concomitant]
     Dosage: UNK UKN, UNK
     Route: 048
  3. IMMUNOSUPPRESSANTS [Concomitant]
  4. BAYASPIRIN [Concomitant]
     Indication: SYSTEMIC LUPUS ERYTHEMATOSUS
     Dosage: 100 MG, UNK
     Route: 048
     Dates: start: 20080214

REACTIONS (2)
  - Paresis [Recovered/Resolved]
  - Cerebral haemorrhage [Recovered/Resolved]
